FAERS Safety Report 24167703 (Version 1)
Quarter: 2024Q3

REPORT INFORMATION
  Report Type: Spontaneous
  Country: US (occurrence: US)
  Receive Date: 20240802
  Receipt Date: 20240802
  Transmission Date: 20241016
  Serious: No
  Sender: ROCHE
  Company Number: US-ROCHE-10000047294

PATIENT
  Sex: Male

DRUGS (1)
  1. HEMLIBRA [Suspect]
     Active Substance: EMICIZUMAB-KXWH
     Indication: Factor VIII deficiency
     Dosage: 250MG (1.66ML) EVERY OTHER WEEK SUBCUTANEOUSLY.??MORE DOSAGE INFO: 105MG/7ML AND 150MG/ML
     Route: 058

REACTIONS (2)
  - Haemorrhage [Unknown]
  - Injury [Unknown]
